FAERS Safety Report 5357690-9 (Version None)
Quarter: 2007Q2

REPORT INFORMATION
  Report Type: 
  Country: None (occurrence: None)
  Receive Date: 20070614
  Receipt Date: 20070607
  Transmission Date: 20071010
  Serious: Yes (Other)
  Sender: FDA-Public Use
  Company Number: GB-SANOFI-SYNTHELABO-A01200706176

PATIENT
  Sex: Male

DRUGS (2)
  1. GOSERELIN ACETATE [Concomitant]
     Indication: PROSTATE CANCER
     Route: 058
  2. LEUPROLIDE ACETATE [Suspect]
     Indication: PROSTATE CANCER
     Route: 058

REACTIONS (1)
  - INJECTION SITE NODULE [None]
